FAERS Safety Report 9991588 (Version 1)
Quarter: 2014Q1

REPORT INFORMATION
  Report Type: Spontaneous
  Country: GB (occurrence: GB)
  Receive Date: 20140310
  Receipt Date: 20140310
  Transmission Date: 20141002
  Serious: Yes (Hospitalization, Other)
  Sender: FDA-Public Use
  Company Number: GB-MYLANLABS-2014S1004589

PATIENT
  Age: 64 Year
  Sex: Male

DRUGS (4)
  1. MODAFINIL [Suspect]
     Indication: RESPIRATORY FAILURE
     Dosage: 200 MILLIGRAM DAILY; TAKEN IN THE MORNING
     Route: 065
  2. BUMETANIDE [Concomitant]
     Indication: PRODUCT USED FOR UNKNOWN INDICATION
  3. SYMBICORT [Concomitant]
     Indication: PRODUCT USED FOR UNKNOWN INDICATION
     Dosage: 4 DOSAGE FORMS DAILY; (400/12) 2 PUFFS BID
  4. TIOTROPIUM [Concomitant]
     Indication: PRODUCT USED FOR UNKNOWN INDICATION
     Dosage: 18 MICROGRAM DAILY;

REACTIONS (7)
  - Lower respiratory tract infection [Recovered/Resolved]
  - Oedema peripheral [Recovered/Resolved]
  - Hypoxia [Recovered/Resolved]
  - Right ventricular failure [Recovered/Resolved]
  - Somnolence [Recovered/Resolved]
  - Sleep apnoea syndrome [Unknown]
  - Off label use [Unknown]
